FAERS Safety Report 7207636-3 (Version None)
Quarter: 2011Q1

REPORT INFORMATION
  Report Type: 
  Country: None (occurrence: None)
  Receive Date: 20110103
  Receipt Date: 20101228
  Transmission Date: 20110831
  Serious: Yes (Life-Threatening, Hospitalization)
  Sender: FDA-Public Use
  Company Number: JP-PFIZER INC-2010163142

PATIENT
  Age: 73 Year
  Sex: Male
  Weight: 64 kg

DRUGS (4)
  1. SURGAM [Suspect]
     Indication: ANTIINFLAMMATORY THERAPY
     Dosage: 200 MG, 1X/DAY
     Route: 048
     Dates: start: 20100927, end: 20101008
  2. DALACIN [Suspect]
     Indication: ANTIBIOTIC THERAPY
     Dosage: 150 MG, 2X/DAY
     Route: 048
     Dates: start: 20101005, end: 20101008
  3. SURGAM [Suspect]
     Indication: ANALGESIC THERAPY
  4. KLARICID [Concomitant]
     Indication: ANTIBIOTIC THERAPY
     Dosage: 200 MG, 1X/DAY
     Route: 048
     Dates: start: 20100927, end: 20101013

REACTIONS (4)
  - RENAL DISORDER [None]
  - ERYTHEMA MULTIFORME [None]
  - LIVER DISORDER [None]
  - DYSPNOEA [None]
